FAERS Safety Report 4374266-0 (Version None)
Quarter: 2004Q2

REPORT INFORMATION
  Report Type: 
  Country: None (occurrence: None)
  Receive Date: 20040608
  Receipt Date: 20040608
  Transmission Date: 20050107
  Serious: Yes (Other)
  Sender: FDA-Public Use
  Company Number: None

PATIENT
  Age: 89 Year
  Sex: Female
  Weight: 53.978 kg

DRUGS (1)
  1. RIFAMPIN [Suspect]
     Indication: CLOSTRIDIAL INFECTION
     Dosage: 600 MG PO QID
     Route: 048

REACTIONS (5)
  - CHROMATURIA [None]
  - COUGH [None]
  - JAUNDICE [None]
  - OEDEMA PERIPHERAL [None]
  - RESPIRATORY TRACT CONGESTION [None]
